FAERS Safety Report 5524330-5 (Version None)
Quarter: 2007Q4

REPORT INFORMATION
  Report Type: 
  Country: None (occurrence: None)
  Receive Date: 20071121
  Receipt Date: 20071112
  Transmission Date: 20080405
  Serious: Yes (Other)
  Sender: FDA-Public Use
  Company Number: US-PFIZER INC-2007095768

PATIENT
  Sex: Female
  Weight: 68 kg

DRUGS (5)
  1. CELEBREX [Suspect]
     Indication: ARTHRITIS
  2. DIOVAN [Concomitant]
     Indication: HYPERTENSION
  3. RANITIDINE HCL [Concomitant]
     Indication: DYSPEPSIA
  4. MIRAPEX [Concomitant]
     Indication: RESTLESS LEGS SYNDROME
  5. BUSPAR [Concomitant]

REACTIONS (2)
  - HEART RATE IRREGULAR [None]
  - ULCER [None]
